FAERS Safety Report 7603517-1 (Version None)
Quarter: 2011Q3

REPORT INFORMATION
  Report Type: 
  Country: None (occurrence: None)
  Receive Date: 20110701
  Receipt Date: 20110623
  Transmission Date: 20111222
  Serious: Yes (Hospitalization)
  Sender: FDA-Public Use
  Company Number: WAES 1004USA00652

PATIENT
  Age: 66 Year
  Sex: Male

DRUGS (13)
  1. TAB ETRAVIRINE [Suspect]
     Indication: HIV INFECTION
     Dosage: 100 MG, BID, PO
     Route: 048
     Dates: start: 20080326
  2. TAB KIVEXA (ABACAVIR SULFATE + LAMIVUDINE [Suspect]
     Indication: HIV INFECTION
     Dosage: PO
     Route: 048
     Dates: start: 20091119
  3. BACTRIM [Concomitant]
  4. ISENTRESS [Suspect]
     Indication: HIV INFECTION
     Dosage: 400 MG, BID, PO
     Route: 048
     Dates: start: 20090603
  5. TAB DARUNAVIR [Suspect]
     Indication: HIV INFECTION
     Dosage: 300 MG, BID, PO
     Route: 048
     Dates: start: 20060607
  6. IMODIUM [Concomitant]
  7. TAB RALTEGRAVIR POTASSIUM [Suspect]
     Indication: HIV INFECTION
     Dosage: 400 MG, BID, PO
     Route: 048
     Dates: start: 20060607, end: 20090602
  8. AUGMENTIN DUO FORTE [Concomitant]
  9. ACYCLOVIR [Concomitant]
  10. CAP RITONAVIR [Suspect]
     Indication: HIV INFECTION
     Dosage: 100 MG, BID, PO
     Route: 048
     Dates: start: 20060607
  11. VALTREX [Concomitant]
  12. TENOFOVIR DISOPROXIL FUMARATE [Suspect]
     Indication: HIV INFECTION
     Dates: start: 20060607
  13. GASTRO GEL [Concomitant]

REACTIONS (3)
  - PLEURAL EFFUSION [None]
  - PNEUMONIA [None]
  - ATELECTASIS [None]
